FAERS Safety Report 23247132 (Version 2)
Quarter: 2023Q4

REPORT INFORMATION
  Report Type: Spontaneous
  Country: DE (occurrence: DE)
  Receive Date: 20231130
  Receipt Date: 20231221
  Transmission Date: 20240109
  Serious: Yes (Hospitalization)
  Sender: FDA-Public Use
  Company Number: DE-SANDOZ-SDZ2023DE005711

PATIENT
  Age: 40 Year
  Sex: Male
  Weight: 72 kg

DRUGS (3)
  1. FILGRASTIM [Suspect]
     Active Substance: FILGRASTIM
     Dosage: UNK (9X 30MU/0.5ML)
     Route: 058
     Dates: start: 20130621, end: 20130625
  2. FILGRASTIM [Suspect]
     Active Substance: FILGRASTIM
     Dosage: UNK (9X 48MU/0.5ML)
     Route: 058
  3. FILGRASTIM [Suspect]
     Active Substance: FILGRASTIM
     Indication: Haematopoietic stem cell mobilisation
     Dosage: UNK
     Route: 065

REACTIONS (1)
  - Femoroacetabular impingement [Recovered/Resolved with Sequelae]

NARRATIVE: CASE EVENT DATE: 20230706
